FAERS Safety Report 5247855-9 (Version None)
Quarter: 2007Q1

REPORT INFORMATION
  Report Type: 
  Country: None (occurrence: None)
  Receive Date: 20070223
  Receipt Date: 20070207
  Transmission Date: 20070707
  Serious: Yes (Other)
  Sender: FDA-Public Use
  Company Number: PHRM2007FR00775

PATIENT
  Age: 8 Year
  Sex: Male

DRUGS (1)
  1. NEORAL [Suspect]
     Indication: TRANSPLANT
     Dosage: 50 MG, BID
     Route: 048
     Dates: start: 20040101

REACTIONS (1)
  - PERSONALITY DISORDER OF CHILDHOOD [None]
